FAERS Safety Report 7486842-7 (Version None)
Quarter: 2011Q2

REPORT INFORMATION
  Report Type: 
  Country: None (occurrence: None)
  Receive Date: 20110517
  Receipt Date: 20100722
  Transmission Date: 20111010
  Serious: No
  Sender: FDA-Public Use
  Company Number: US-ALLERGAN-1009542US

PATIENT
  Age: 59 Year
  Sex: Female

DRUGS (4)
  1. TRAVATAN [Concomitant]
     Indication: GLAUCOMA
     Dosage: 1 GTT, QHS
     Route: 047
     Dates: start: 20080101, end: 20100617
  2. XIBROM [Suspect]
     Dosage: 1 GTT, BID
     Route: 047
     Dates: start: 20100608, end: 20100617
  3. PRED FORTE [Suspect]
     Indication: PROPHYLAXIS
     Dosage: UNK
     Route: 047
     Dates: end: 20100617
  4. ZYMAR [Suspect]
     Indication: PROPHYLAXIS
     Dosage: UNK
     Route: 047
     Dates: end: 20100617

REACTIONS (2)
  - NAUSEA [None]
  - DIZZINESS [None]
